FAERS Safety Report 25997165 (Version 1)
Quarter: 2025Q4

REPORT INFORMATION
  Report Type: Spontaneous
  Country: EU (occurrence: EU)
  Receive Date: 20251104
  Receipt Date: 20251104
  Transmission Date: 20260118
  Serious: Yes (Other)
  Sender: NOVARTIS
  Company Number: None

PATIENT
  Age: 33 Year
  Sex: Female

DRUGS (3)
  1. CYCLOSPORINE [Suspect]
     Active Substance: CYCLOSPORINE
     Indication: Dermatitis atopic
     Dosage: 1 AS NECESSARY, QD (COLLYRE)
     Route: 003
     Dates: start: 2022, end: 2023
  2. PROTOPIC [Suspect]
     Active Substance: TACROLIMUS
     Indication: Dermatitis atopic
     Dosage: 1 AS NECESSARY, QD (LA PATIENTE A FAIT AU MOINS 4-5 CURES EN ATTAQUE C^EST-?-DIRE APPLICATION QUOTID
     Route: 003
     Dates: start: 20241216, end: 20250730
  3. DEXAMETHASONE SODIUM PHOSPHATE [Suspect]
     Active Substance: DEXAMETHASONE SODIUM PHOSPHATE
     Indication: Dermatitis atopic
     Dosage: 1 AS NECESSARY, QD (EYE DROPS SOLUTION)
     Route: 003
     Dates: start: 2023, end: 202412

REACTIONS (1)
  - Malignant neoplasm of eyelid [Not Recovered/Not Resolved]

NARRATIVE: CASE EVENT DATE: 20250721
